FAERS Safety Report 9577300 (Version 1)
Quarter: 2013Q4

REPORT INFORMATION
  Report Type: Spontaneous
  Country: US (occurrence: US)
  Receive Date: 20131001
  Receipt Date: 20131001
  Transmission Date: 20140711
  Serious: No
  Sender: FDA-Public Use
  Company Number: US-AMGEN-USASP2013007116

PATIENT
  Age: 54 Year
  Sex: Female
  Weight: 80.73 kg

DRUGS (8)
  1. ENBREL [Suspect]
     Indication: RHEUMATOID ARTHRITIS
     Dosage: 50 MG, QWK
     Route: 058
  2. CALTRATE D                         /01483701/ [Concomitant]
     Dosage: 600-800, UNK, UNK
  3. METHOTREXATE [Concomitant]
     Dosage: 2.5 MG, UNK
  4. FOLIC ACID [Concomitant]
     Dosage: 1 MG, UNK
  5. ECHINACEA PURPUREA [Concomitant]
     Dosage: UNK
  6. VITAMIN D                          /00107901/ [Concomitant]
     Dosage: 1000 UNIT, UNK
  7. MUCINEX DM [Concomitant]
     Dosage: 60-1200, UNK, UNK
  8. ESTER C                            /00008001/ [Concomitant]
     Dosage: UNK

REACTIONS (3)
  - Influenza [Not Recovered/Not Resolved]
  - Sinus congestion [Recovered/Resolved]
  - Respiratory tract congestion [Recovered/Resolved]
